FAERS Safety Report 8826232 (Version 5)
Quarter: 2013Q3

REPORT INFORMATION
  Report Type: Report from Study
  Country: CA (occurrence: CA)
  Receive Date: 20121005
  Receipt Date: 20130708
  Transmission Date: 20140515
  Serious: Yes (Hospitalization)
  Sender: FDA-Public Use
  Company Number: PHHY2012CA087100

PATIENT
  Age: 75 Year
  Sex: Female

DRUGS (1)
  1. SANDOSTATIN LAR [Suspect]
     Indication: ACROMEGALY
     Dosage: 20 MG, EVERY 4 WEEKS
     Route: 030
     Dates: start: 20041102

REACTIONS (5)
  - Osteoarthritis [Unknown]
  - Arthralgia [Unknown]
  - General physical health deterioration [Unknown]
  - Lymphadenopathy [Unknown]
  - Oral herpes [Unknown]
